FAERS Safety Report 8537144-9 (Version None)
Quarter: 2012Q3

REPORT INFORMATION
  Report Type: 
  Country: None (occurrence: None)
  Receive Date: 20120725
  Receipt Date: 20120716
  Transmission Date: 20120928
  Serious: Yes (Hospitalization)
  Sender: FDA-Public Use
  Company Number: BR-ASTRAZENECA-2011SE64925

PATIENT
  Age: 34 Year
  Sex: Female

DRUGS (7)
  1. BUDESONIDE [Suspect]
     Indication: SINUSITIS
     Route: 045
     Dates: start: 20111001
  2. FOLIC ACID [Suspect]
     Indication: VITAMIN SUPPLEMENTATION
     Route: 048
  3. SYMBICORT [Suspect]
     Indication: BRONCHITIS
     Dosage: 320/9 MCG UNKNOWN FREQUENCY
     Route: 055
  4. SODIUM CHLORIDE 0.9% [Suspect]
     Indication: ASTHMA
     Route: 055
     Dates: start: 20111001
  5. FERROUS SULFATE TAB [Suspect]
     Indication: VITAMIN SUPPLEMENTATION
     Route: 048
  6. SYMBICORT [Suspect]
     Indication: ASTHMA
     Dosage: 320/9 MCG UNKNOWN FREQUENCY
     Route: 055
  7. BUDESONIDE [Suspect]
     Indication: RHINITIS
     Route: 045
     Dates: start: 20111001

REACTIONS (3)
  - BLOOD PRESSURE INCREASED [None]
  - MATERNAL EXPOSURE DURING PREGNANCY [None]
  - DYSPNOEA [None]
